FAERS Safety Report 24779929 (Version 1)
Quarter: 2024Q4

REPORT INFORMATION
  Report Type: Spontaneous
  Country: JP (occurrence: JP)
  Receive Date: 20241226
  Receipt Date: 20241226
  Transmission Date: 20250114
  Serious: Yes (Hospitalization, Other)
  Sender: GLAXOSMITHKLINE
  Company Number: JP-GSKJP-JP2024JPN131343AA

PATIENT

DRUGS (14)
  1. DAPRODUSTAT [Suspect]
     Active Substance: DAPRODUSTAT
     Indication: Nephrogenic anaemia
     Dosage: 4 MG, QD, IN MORNING
     Route: 048
     Dates: start: 20240821
  2. RABEPRAZOLE [Concomitant]
     Active Substance: RABEPRAZOLE
     Dosage: 10 MG, 1D, IN MORNING
  3. Azunol [Concomitant]
     Dosage: USE AS NEEDED, 3 TO 4 TIMES A DAY
  4. HYALURONATE SODIUM [Concomitant]
     Active Substance: HYALURONATE SODIUM
     Dosage: UNK, BID, BOTH EYES
  5. ELDECALCITOL [Concomitant]
     Active Substance: ELDECALCITOL
     Dosage: 0.5 ?G, 1D, IN MORNING
  6. ACETAMINOPHEN [Concomitant]
     Active Substance: ACETAMINOPHEN
     Dosage: 500 MG, AT THE TIME OF PAIN AS NEEDED
  7. FEXOFENADINE [Concomitant]
     Active Substance: FEXOFENADINE HYDROCHLORIDE
     Dosage: 60 MG, BID, IN MORNING AND EVENING
  8. HEPARINOID [Concomitant]
     Dosage: APPLIED SEVERAL TIMES A DAY
  9. ACTEMRA [Concomitant]
     Active Substance: TOCILIZUMAB
     Dosage: UNK
  10. FERINJECT [Concomitant]
     Active Substance: FERRIC CARBOXYMALTOSE
     Dosage: UNK
  11. ORENCIA [Concomitant]
     Active Substance: ABATACEPT
     Dosage: UNK
  12. ORENCIA [Concomitant]
     Active Substance: ABATACEPT
     Dosage: UNK
     Dates: start: 20241002
  13. DENOSUMAB [Concomitant]
     Active Substance: DENOSUMAB
     Dosage: UNK
  14. Incremin [Concomitant]
     Dosage: UNK
     Route: 048
     Dates: end: 202408

REACTIONS (9)
  - Cellulitis [Recovering/Resolving]
  - Thrombosis [Unknown]
  - Phlebitis [Recovered/Resolved]
  - Erythema [Unknown]
  - Pain in extremity [Unknown]
  - Stasis dermatitis [Unknown]
  - Oedema peripheral [Recovering/Resolving]
  - Purpura [Unknown]
  - Synovial cyst [Unknown]

NARRATIVE: CASE EVENT DATE: 20240914
